FAERS Safety Report 7417941-3 (Version None)
Quarter: 2011Q2

REPORT INFORMATION
  Report Type: 
  Country: None (occurrence: None)
  Receive Date: 20110412
  Receipt Date: 20110412
  Transmission Date: 20111010
  Serious: Yes (Hospitalization)
  Sender: FDA-Public Use
  Company Number: None

PATIENT
  Age: 76 Year
  Sex: Male
  Weight: 55 kg

DRUGS (1)
  1. VIDAZA [Suspect]
     Indication: MYELODYSPLASTIC SYNDROME
     Dates: start: 20101201, end: 20110201

REACTIONS (3)
  - EOSINOPHILIC PNEUMONIA ACUTE [None]
  - DECREASED APPETITE [None]
  - WEIGHT DECREASED [None]
